FAERS Safety Report 5352020-0 (Version None)
Quarter: 2007Q2

REPORT INFORMATION
  Report Type: 
  Country: None (occurrence: None)
  Receive Date: 20070611
  Receipt Date: 20070601
  Transmission Date: 20071010
  Serious: Yes (Hospitalization, Other)
  Sender: FDA-Public Use
  Company Number: PHNR2007AU01127

PATIENT
  Age: 62 Year
  Sex: Male

DRUGS (3)
  1. ZOMETA [Suspect]
     Indication: MULTIPLE MYELOMA
     Dosage: UNK, UNK
     Route: 042
     Dates: start: 20031111, end: 20040816
  2. BONEFOS ^SCHERING^ [Concomitant]
     Dates: start: 20030408, end: 20030922
  3. BONEFOS ^SCHERING^ [Concomitant]

REACTIONS (6)
  - BONE DEBRIDEMENT [None]
  - BONE DISORDER [None]
  - ELECTROLYTE IMBALANCE [None]
  - FANCONI SYNDROME ACQUIRED [None]
  - OSTEONECROSIS [None]
  - PAIN IN JAW [None]
